FAERS Safety Report 6250675-X (Version None)
Quarter: 2009Q2

REPORT INFORMATION
  Report Type: 
  Country: None (occurrence: None)
  Receive Date: 20090626
  Receipt Date: 20090618
  Transmission Date: 20091009
  Serious: Yes (Death)
  Sender: FDA-Public Use
  Company Number: 2009-02217

PATIENT

DRUGS (6)
  1. VELCADE [Suspect]
     Indication: MULTIPLE MYELOMA
     Dosage: 1.3 MG/M2
  2. THALIDOMIDE [Suspect]
     Indication: MULTIPLE MYELOMA
  3. CIPROFLOXACIN [Concomitant]
  4. VALACYCLOVIR HCL [Suspect]
  5. DEXAMETHASONE TAB [Suspect]
     Dosage: 20 MG
  6. DOXRUBICIN          (DOXRUBICIN) [Suspect]

REACTIONS (1)
  - INFECTION [None]
